FAERS Safety Report 7692662-0 (Version None)
Quarter: 2011Q3

REPORT INFORMATION
  Report Type: 
  Country: None (occurrence: None)
  Receive Date: 20110819
  Receipt Date: 20110811
  Transmission Date: 20111222
  Serious: Yes (Hospitalization)
  Sender: FDA-Public Use
  Company Number: IT-CEPHALON-2011004296

PATIENT
  Sex: Female

DRUGS (2)
  1. RITUXIMAB [Suspect]
     Indication: WALDENSTROM'S MACROGLOBULINAEMIA
     Dates: start: 20110705
  2. BENDAMUSTINE HCL [Suspect]
     Indication: WALDENSTROM'S MACROGLOBULINAEMIA
     Dates: start: 20110705

REACTIONS (2)
  - INFLAMMATORY MYOFIBROBLASTIC TUMOUR [None]
  - CULTURE URINE POSITIVE [None]
